FAERS Safety Report 7554037-4 (Version None)
Quarter: 2011Q2

REPORT INFORMATION
  Report Type: 
  Country: None (occurrence: None)
  Receive Date: 20110617
  Receipt Date: 20110614
  Transmission Date: 20111010
  Serious: Yes (Hospitalization)
  Sender: FDA-Public Use
  Company Number: JP-SANOFI-AVENTIS-2011SA037606

PATIENT
  Age: 22 Year
  Sex: Male

DRUGS (2)
  1. OLOPATADINE HCL [Concomitant]
     Route: 048
  2. ALLEGRA [Suspect]
     Route: 048

REACTIONS (1)
  - HEPATITIS ACUTE [None]
